FAERS Safety Report 24230660 (Version 3)
Quarter: 2024Q3

REPORT INFORMATION
  Report Type: Report from Study
  Country: US (occurrence: US)
  Receive Date: 20240821
  Receipt Date: 20240910
  Transmission Date: 20241016
  Serious: Yes (Other)
  Sender: AMGEN
  Company Number: US-AMGEN-USASL2024106198

PATIENT
  Age: 58 Year
  Sex: Female
  Weight: 81.995 kg

DRUGS (2)
  1. TEPEZZA [Suspect]
     Active Substance: TEPROTUMUMAB-TRBW
     Indication: Toxic goitre
     Dosage: 820 MILLIGRAM/KILOGRAM,(10 MG/KG), FIRST INFUSION
     Route: 042
     Dates: start: 20240522
  2. TEPEZZA [Suspect]
     Active Substance: TEPROTUMUMAB-TRBW
     Dosage: 1640 MILLIGRAM/KILOGRAM,(20 MG/KG)
     Route: 042
     Dates: start: 2024

REACTIONS (7)
  - Deafness [Unknown]
  - Tinnitus [Not Recovered/Not Resolved]
  - Blood glucose increased [Unknown]
  - Muscle spasms [Unknown]
  - Fatigue [Unknown]
  - Urticaria [Not Recovered/Not Resolved]
  - Abdominal pain upper [Unknown]

NARRATIVE: CASE EVENT DATE: 20240101
